FAERS Safety Report 9124048 (Version 1)
Quarter: 2013Q1

REPORT INFORMATION
  Report Type: Spontaneous
  Country: US (occurrence: US)
  Receive Date: 20130116
  Receipt Date: 20130116
  Transmission Date: 20140127
  Serious: Yes (Other)
  Sender: FDA-Public Use
  Company Number: US-PFIZER INC-2013017145

PATIENT
  Age: 47 Year
  Sex: Male

DRUGS (6)
  1. GABAPENTIN [Suspect]
     Dosage: UNK
  2. ALLOPURINOL [Concomitant]
  3. MOBIC [Concomitant]
  4. ENBREL [Concomitant]
  5. PREDNISONE [Concomitant]
  6. PLAQUENIL [Concomitant]

REACTIONS (1)
  - Vision blurred [Not Recovered/Not Resolved]
